FAERS Safety Report 9135224 (Version 1)
Quarter: 2013Q1

REPORT INFORMATION
  Report Type: Spontaneous
  Country: US (occurrence: US)
  Receive Date: 20130304
  Receipt Date: 20130304
  Transmission Date: 20140127
  Serious: Yes (Other)
  Sender: FDA-Public Use
  Company Number: US-ENDO PHARMACEUTICALS INC.-ENDC20110010

PATIENT
  Age: 55 Year
  Sex: Female

DRUGS (2)
  1. ENDOCET [Suspect]
     Indication: PAIN
     Dosage: 7.5/325 MG
     Route: 048
     Dates: start: 20110217, end: 20110217
  2. ENDOCET [Suspect]
     Indication: MUSCLE SPASMS

REACTIONS (2)
  - Pharyngeal oedema [Recovering/Resolving]
  - Dry throat [Not Recovered/Not Resolved]
